FAERS Safety Report 8421798-1 (Version None)
Quarter: 2012Q2

REPORT INFORMATION
  Report Type: 
  Country: None (occurrence: None)
  Receive Date: 20120605
  Receipt Date: 20120605
  Transmission Date: 20120825
  Serious: Yes (Other)
  Sender: FDA-Public Use
  Company Number: None

PATIENT
  Sex: Female
  Weight: 53.0709 kg

DRUGS (1)
  1. AZITHROMYCIN [Suspect]
     Indication: BRONCHITIS
     Dosage: 2 TABLETS FIRST DAY 1 TABLET AFTERWARDS EACH DAY FOR 5 DAYS
     Dates: start: 20120410, end: 20120414

REACTIONS (8)
  - NAUSEA [None]
  - VISUAL IMPAIRMENT [None]
  - DYSPNOEA [None]
  - ABDOMINAL PAIN UPPER [None]
  - HYPOACUSIS [None]
  - MALAISE [None]
  - DIZZINESS [None]
  - WEIGHT DECREASED [None]
